FAERS Safety Report 5470696-4 (Version None)
Quarter: 2007Q3

REPORT INFORMATION
  Report Type: 
  Country: None (occurrence: None)
  Receive Date: 20070928
  Receipt Date: 20070925
  Transmission Date: 20080115
  Serious: Yes (Death, Disabling, Other)
  Sender: FDA-Public Use
  Company Number: US-BAYER-200713450BWH

PATIENT
  Age: 71 Year
  Sex: Male

DRUGS (1)
  1. TRASYLOL [Suspect]
     Indication: CARDIAC OPERATION
     Dates: start: 20050801

REACTIONS (12)
  - ANXIETY [None]
  - ATRIAL FIBRILLATION [None]
  - CARDIAC ARREST [None]
  - CARDIO-RESPIRATORY ARREST [None]
  - GENERAL PHYSICAL HEALTH DETERIORATION [None]
  - HYPOXIA [None]
  - ILL-DEFINED DISORDER [None]
  - INJURY [None]
  - METABOLIC ACIDOSIS [None]
  - PAIN [None]
  - RENAL FAILURE [None]
  - RESPIRATORY FAILURE [None]
